FAERS Safety Report 9531623 (Version 2)
Quarter: 2013Q4

REPORT INFORMATION
  Report Type: Spontaneous
  Country: FR (occurrence: None)
  Receive Date: 20130916
  Receipt Date: 20131119
  Transmission Date: 20140711
  Serious: Yes (Hospitalization)
  Sender: FDA-Public Use
  Company Number: 2013000237

PATIENT
  Age: 60 Year
  Sex: Female

DRUGS (6)
  1. ACEON [Suspect]
     Indication: PRODUCT USED FOR UNKNOWN INDICATION
     Route: 048
     Dates: start: 20130213, end: 20130607
  2. ZYLORIC [Suspect]
     Indication: PRODUCT USED FOR UNKNOWN INDICATION
     Route: 048
     Dates: start: 20130517, end: 20130624
  3. KARDEGIC (ACETYLSALICYLATE LYSINE) [Concomitant]
  4. PRAVASTATIN (PRAVASTATIN) [Concomitant]
  5. FUROSEMIDE (FUROSEMIDE) [Concomitant]
  6. BICARBONATE (SODIUM BICARBONATE) [Concomitant]

REACTIONS (4)
  - Drug reaction with eosinophilia and systemic symptoms [None]
  - Aspartate aminotransferase increased [None]
  - Alanine aminotransferase increased [None]
  - Hyperkalaemia [None]
